FAERS Safety Report 6071708-X (Version None)
Quarter: 2009Q1

REPORT INFORMATION
  Report Type: 
  Country: None (occurrence: None)
  Receive Date: 20090209
  Receipt Date: 20090209
  Transmission Date: 20090719
  Serious: No
  Sender: FDA-Public Use
  Company Number: None

PATIENT
  Age: 58 Year
  Sex: Male
  Weight: 80.74 kg

DRUGS (1)
  1. AMOXICILLIN [Suspect]
     Indication: SINUSITIS
     Dosage: 500 MG TID PO
     Route: 048
     Dates: start: 20090204, end: 20090206

REACTIONS (3)
  - CHEILITIS [None]
  - LIP SWELLING [None]
  - PRODUCT QUALITY ISSUE [None]
